FAERS Safety Report 4984052-6 (Version None)
Quarter: 2006Q1

REPORT INFORMATION
  Report Type: 
  Country: None (occurrence: None)
  Receive Date: 20060302
  Receipt Date: 20051201
  Transmission Date: 20060701
  Serious: Yes (Other)
  Sender: FDA-Public Use
  Company Number: S05-USA-05092-01

PATIENT
  Sex: 0

DRUGS (1)
  1. CAMPRAL [Suspect]
     Dates: start: 20050101

REACTIONS (1)
  - CONVULSION [None]
